FAERS Safety Report 10902316 (Version 1)
Quarter: 2015Q1

REPORT INFORMATION
  Report Type: Spontaneous
  Country: JP (occurrence: JP)
  Receive Date: 20150310
  Receipt Date: 20150310
  Transmission Date: 20150721
  Serious: Yes (Death, Other)
  Sender: FDA-Public Use
  Company Number: PHHY2015JP024466

PATIENT
  Sex: Female
  Weight: 43 kg

DRUGS (5)
  1. IBUPROFEN. [Suspect]
     Active Substance: IBUPROFEN
     Indication: PRODUCT USED FOR UNKNOWN INDICATION
     Route: 065
  2. CAFFEINE. [Suspect]
     Active Substance: CAFFEINE
     Indication: PRODUCT USED FOR UNKNOWN INDICATION
     Route: 065
  3. BROMVALERYLUREA [Suspect]
     Active Substance: BROMISOVAL
     Indication: PRODUCT USED FOR UNKNOWN INDICATION
     Route: 065
  4. ETHENZAMIDE [Suspect]
     Active Substance: ETHENZAMIDE
     Indication: PRODUCT USED FOR UNKNOWN INDICATION
     Route: 065
  5. SALICYLAMIDE [Suspect]
     Active Substance: SALICYLAMIDE
     Indication: PRODUCT USED FOR UNKNOWN INDICATION
     Route: 065

REACTIONS (9)
  - Sweat gland disorder [Unknown]
  - Coma blister [Unknown]
  - Erythema [Unknown]
  - Lividity [Unknown]
  - Overdose [Fatal]
  - Excoriation [Unknown]
  - Blister [Unknown]
  - Skin lesion [Unknown]
  - Dermatitis bullous [Unknown]
